FAERS Safety Report 4676103-3 (Version None)
Quarter: 2005Q2

REPORT INFORMATION
  Report Type: 
  Country: None (occurrence: None)
  Receive Date: 20050527
  Receipt Date: 20050328
  Transmission Date: 20051028
  Serious: Yes (Hospitalization)
  Sender: FDA-Public Use
  Company Number: US-GLAXOSMITHKLINE-A0551453A

PATIENT
  Age: 39 Year
  Sex: Male

DRUGS (3)
  1. WELLBUTRIN [Suspect]
     Indication: DEPRESSION
     Dosage: 150MG PER DAY
     Route: 048
     Dates: end: 20050325
  2. LIPITOR [Concomitant]
  3. ZYRTEC [Concomitant]

REACTIONS (1)
  - GRAND MAL CONVULSION [None]
